FAERS Safety Report 20544295 (Version 2)
Quarter: 2022Q1

REPORT INFORMATION
  Report Type: Spontaneous
  Country: US (occurrence: US)
  Receive Date: 20220303
  Receipt Date: 20220318
  Transmission Date: 20220423
  Serious: Yes (Other)
  Sender: FDA-Public Use
  Company Number: US-ORGANON-O2202USA001791

PATIENT
  Age: 58 Year
  Sex: Female

DRUGS (7)
  1. DULERA [Suspect]
     Active Substance: FORMOTEROL FUMARATE DIHYDRATE\MOMETASONE FUROATE
     Dosage: TWO SPRAYS ^IN THE LUNGS^, TWICE DAILY (120 INHALATIONS)
     Dates: start: 20220124
  2. DULERA [Suspect]
     Active Substance: FORMOTEROL FUMARATE DIHYDRATE\MOMETASONE FUROATE
     Dosage: 1 PUFF DAILY
     Dates: start: 20220219
  3. ASMANEX [Suspect]
     Active Substance: MOMETASONE FUROATE
     Dosage: ONCE DAILY
     Dates: start: 201912, end: 20220119
  4. DULERA [Suspect]
     Active Substance: FORMOTEROL FUMARATE DIHYDRATE\MOMETASONE FUROATE
     Dosage: TWO PUFFS TWICE DAILY, 60 INHALATIONS
     Dates: start: 2022
  5. ASMANEX HFA [Suspect]
     Active Substance: MOMETASONE FUROATE
     Dosage: DAILY
     Dates: start: 20220219
  6. ALBUTEROL [Suspect]
     Active Substance: ALBUTEROL
     Dosage: 2.5MG/3ML VIAL, EVERY 4-6 HOURS (NEBULIZER)
     Dates: start: 20220219
  7. PROAIR RESPICLICK [Suspect]
     Active Substance: ALBUTEROL SULFATE
     Dosage: 2 PUFFS EVERY 6 HOURS (INHALER)

REACTIONS (11)
  - Immunodeficiency common variable [Unknown]
  - Throat irritation [Unknown]
  - Asthma [Not Recovered/Not Resolved]
  - Aphonia [Unknown]
  - Laryngitis [Unknown]
  - Product availability issue [Unknown]
  - Incorrect dose administered [Unknown]
  - Expired product administered [Unknown]
  - Product dose omission issue [Unknown]
  - Product supply issue [Unknown]
  - Product quality issue [Unknown]

NARRATIVE: CASE EVENT DATE: 20200101
